FAERS Safety Report 7635464-3 (Version None)
Quarter: 2011Q3

REPORT INFORMATION
  Report Type: 
  Country: None (occurrence: None)
  Receive Date: 20110726
  Receipt Date: 20110726
  Transmission Date: 20111222
  Serious: Yes (Death, Life-Threatening, Hospitalization)
  Sender: FDA-Public Use
  Company Number: None

PATIENT
  Age: 84 Year
  Sex: Female
  Weight: 43.091 kg

DRUGS (1)
  1. PRADAXA [Suspect]
     Indication: ATRIAL FIBRILLATION
     Dosage: 150 MG CAPSULE
     Route: 048
     Dates: start: 20110515, end: 20110702

REACTIONS (3)
  - HEADACHE [None]
  - MOBILITY DECREASED [None]
  - VISION BLURRED [None]
